FAERS Safety Report 5268861-4 (Version None)
Quarter: 2007Q1

REPORT INFORMATION
  Report Type: 
  Country: None (occurrence: None)
  Receive Date: 20061213
  Receipt Date: 20031210
  Transmission Date: 20070707
  Serious: Yes (Other)
  Sender: FDA-Public Use
  Company Number: 2003UW16384

PATIENT
  Age: 65 Year
  Sex: Female
  Weight: 68.0396 kg

DRUGS (2)
  1. IRESSA [Suspect]
     Dosage: 250 MG QD PO
     Route: 048
  2. PROZAC [Concomitant]

REACTIONS (2)
  - CHEST DISCOMFORT [None]
  - DYSPNOEA [None]
